FAERS Safety Report 19747950 (Version 3)
Quarter: 2022Q4

REPORT INFORMATION
  Report Type: Spontaneous
  Country: US (occurrence: US)
  Receive Date: 20210825
  Receipt Date: 20221007
  Transmission Date: 20230113
  Serious: No
  Sender: FDA-Public Use
  Company Number: US-BIOMARINAP-US-2021-138212

PATIENT

DRUGS (2)
  1. ALDURAZYME [Suspect]
     Active Substance: LARONIDASE
     Indication: Mucopolysaccharidosis I
     Dosage: 13.92 MG, QW
     Route: 042
     Dates: start: 20200107
  2. ALDURAZYME [Suspect]
     Active Substance: LARONIDASE
     Dosage: 13.92 MG, QW
     Route: 042
     Dates: start: 20191106, end: 20220707

REACTIONS (1)
  - Weight increased [Unknown]
